FAERS Safety Report 12145812 (Version 3)
Quarter: 2016Q2

REPORT INFORMATION
  Report Type: Spontaneous
  Country: US (occurrence: US)
  Receive Date: 20160304
  Receipt Date: 20160526
  Transmission Date: 20160815
  Serious: Yes (Hospitalization)
  Sender: FDA-Public Use
  Company Number: US-VERTEX PHARMACEUTICALS-2016-001242

PATIENT
  Age: 17 Year
  Sex: Female

DRUGS (5)
  1. ORKAMBI [Suspect]
     Active Substance: IVACAFTOR\LUMACAFTOR
     Indication: CYSTIC FIBROSIS
     Dosage: 400/250 MG, BID
     Route: 048
  2. VITAMIN K [Concomitant]
     Active Substance: PHYTONADIONE
  3. HYCET [Concomitant]
     Active Substance: ACETAMINOPHEN\HYDROCODONE BITARTRATE
  4. URSODIOL. [Concomitant]
     Active Substance: URSODIOL
  5. COLISTIMETHATE [Concomitant]
     Active Substance: COLISTIMETHATE SODIUM

REACTIONS (7)
  - Arthralgia [Unknown]
  - Nasopharyngitis [Unknown]
  - Infective pulmonary exacerbation of cystic fibrosis [Recovering/Resolving]
  - Decreased appetite [Recovering/Resolving]
  - Flank pain [Recovering/Resolving]
  - Pneumonia [Recovering/Resolving]
  - Weight decreased [Recovering/Resolving]

NARRATIVE: CASE EVENT DATE: 201601
